FAERS Safety Report 23310839 (Version 1)
Quarter: 2023Q4

REPORT INFORMATION
  Report Type: Spontaneous
  Country: US (occurrence: US)
  Receive Date: 20231218
  Receipt Date: 20231218
  Transmission Date: 20240109
  Serious: No
  Sender: FDA-Public Use
  Company Number: None

PATIENT
  Age: 56 Year
  Sex: Female

DRUGS (2)
  1. MYCOPHENOLATE MOFETIL [Suspect]
     Active Substance: MYCOPHENOLATE MOFETIL
     Indication: Alopecia
     Dosage: 1 GRAM, QD (EVERY 1 DAY)
     Route: 065
  2. MINOXIDIL [Concomitant]
     Active Substance: MINOXIDIL
     Indication: Alopecia
     Dosage: UNK
     Route: 061

REACTIONS (4)
  - Skin disorder [Unknown]
  - Skin swelling [Unknown]
  - Pain of skin [Not Recovered/Not Resolved]
  - Oedema [Unknown]
